FAERS Safety Report 24316358 (Version 2)
Quarter: 2024Q3

REPORT INFORMATION
  Report Type: Spontaneous
  Country: FR (occurrence: FR)
  Receive Date: 20240913
  Receipt Date: 20240923
  Transmission Date: 20241017
  Serious: Yes (Hospitalization)
  Sender: CHEPLAPHARM
  Company Number: None

PATIENT
  Age: 43 Year
  Sex: Female
  Weight: 152 kg

DRUGS (9)
  1. OLANZAPINE [Interacting]
     Active Substance: OLANZAPINE
     Indication: Schizophrenia
     Dosage: DAILY DOSE: 20 MILLIGRAM
     Route: 030
     Dates: start: 20240803
  2. ZUCLOPENTHIXOL [Interacting]
     Active Substance: ZUCLOPENTHIXOL
     Indication: Schizophrenia
     Dosage: SEMI LONG-LASTING ACTION 50 MG/ML, SOLUTION FOR INJECTION I.M.;
     Route: 030
     Dates: start: 20240803
  3. ZUCLOPENTHIXOL [Interacting]
     Active Substance: ZUCLOPENTHIXOL
     Indication: Schizophrenia
     Dosage: INJECTION OF 3 AMPOULES OF CLOPIXOL 50MG
     Route: 030
     Dates: start: 20240808
  4. LOXAPINE [Interacting]
     Active Substance: LOXAPINE
     Indication: Schizophrenia
     Dosage: 50 MG/2 ML, SOLUTION FOR INJECTION IN AMPOULE (IM)
     Route: 030
     Dates: start: 20240803
  5. LOXAPINE [Interacting]
     Active Substance: LOXAPINE
     Indication: Schizophrenia
     Dosage: LOXAPAC 2 AMPOULES
     Route: 030
     Dates: start: 20240808
  6. LOXAPINE [Interacting]
     Active Substance: LOXAPINE
     Indication: Schizophrenia
     Dosage: INJECTION OF 2 AMPOULES OF LOXAPAC
     Route: 030
     Dates: start: 20240809
  7. VALIUM [Interacting]
     Active Substance: DIAZEPAM
     Indication: Agitation
     Dosage: 10 MG/2 ML, SOLUTION FOR INJECTION
     Route: 030
     Dates: start: 20240803
  8. VALIUM [Interacting]
     Active Substance: DIAZEPAM
     Indication: Agitation
     Dosage: 1 OF VALIUM, AT 12 NOON
     Route: 030
     Dates: start: 20240809
  9. DUPHALAC [Concomitant]
     Active Substance: LACTULOSE

REACTIONS (2)
  - Subileus [Recovered/Resolved]
  - Drug interaction [Recovered/Resolved]

NARRATIVE: CASE EVENT DATE: 20240809
